FAERS Safety Report 5032052-2 (Version None)
Quarter: 2006Q2

REPORT INFORMATION
  Report Type: 
  Country: None (occurrence: None)
  Receive Date: 20060616
  Receipt Date: 20060605
  Transmission Date: 20061013
  Serious: Yes (Hospitalization, Other)
  Sender: FDA-Public Use
  Company Number: CHPA2006US05486

PATIENT
  Sex: Female

DRUGS (6)
  1. EX-LAX LAXATIVE UNKNOWN FORMULA (NCH) (UNKNOWN) UNKNOWN [Suspect]
     Indication: CONSTIPATION
     Dosage: 1 TO 2 DOSES DAILY
     Dates: start: 19930101, end: 19990101
  2. FEEN-A-MINT(PHENOLPHTHALEIN) [Suspect]
     Indication: CONSTIPATION
     Dosage: 1 TO 2 DOSES DAILY
     Dates: start: 19930101, end: 19990101
  3. CORRECTOL  SCHERING-PLOUGH (BISCADOYL) [Suspect]
     Indication: CONSTIPATION
     Dosage: 1 TO 2 DOSES DAILY
  4. INDERAL LA [Concomitant]
  5. CATAPRES-TTS-1 [Concomitant]
  6. MONOPRIL [Concomitant]

REACTIONS (11)
  - ABDOMINAL PAIN [None]
  - DECREASED APPETITE [None]
  - DRUG ABUSER [None]
  - ERUCTATION [None]
  - FOOD INTOLERANCE [None]
  - HAEMORRHOIDS [None]
  - IRRITABLE BOWEL SYNDROME [None]
  - NAUSEA [None]
  - RECTAL HAEMORRHAGE [None]
  - VOMITING [None]
  - WEIGHT DECREASED [None]
